FAERS Safety Report 7535443-0 (Version None)
Quarter: 2011Q2

REPORT INFORMATION
  Report Type: 
  Country: None (occurrence: None)
  Receive Date: 20110609
  Receipt Date: 20080624
  Transmission Date: 20111010
  Serious: Yes (Other)
  Sender: FDA-Public Use
  Company Number: PHHY2008CA12360

PATIENT
  Sex: Female

DRUGS (6)
  1. ZOLEDRONIC ACID [Suspect]
     Indication: OSTEOPOROSIS
     Dosage: 5 MG, UNK
     Route: 042
     Dates: start: 20080616
  2. WARFARIN SODIUM [Concomitant]
  3. DEXIDRINE [Concomitant]
  4. LYRICA [Concomitant]
     Dosage: 75 MG, UNK
     Route: 048
  5. NOZINAN [Concomitant]
  6. MORPHINE SULFATE [Concomitant]

REACTIONS (2)
  - PAIN [None]
  - NEUROPATHY PERIPHERAL [None]
